FAERS Safety Report 4327867-X (Version None)
Quarter: 2004Q1

REPORT INFORMATION
  Report Type: 
  Country: None (occurrence: None)
  Receive Date: 20040325
  Receipt Date: 20040309
  Transmission Date: 20041129
  Serious: Yes (Hospitalization)
  Sender: FDA-Public Use
  Company Number: AU-JNJFOC-20040304318

PATIENT
  Age: 34 Year
  Sex: Female

DRUGS (3)
  1. TRAMADOL HCL [Suspect]
     Dosage: 100 MG, 1 IN 1 DAY, ORAL
     Route: 048
     Dates: start: 20030609, end: 20030609
  2. KEFLEX [Suspect]
     Dosage: 2 G, IN 1 DAY
     Dates: start: 20030609, end: 20030610
  3. HEPARIN [Concomitant]

REACTIONS (6)
  - BRADYCARDIA [None]
  - EYE ROLLING [None]
  - HYPERHIDROSIS [None]
  - LOSS OF CONSCIOUSNESS [None]
  - PALLOR [None]
  - STRIDOR [None]
